FAERS Safety Report 6709655-X (Version None)
Quarter: 2010Q2

REPORT INFORMATION
  Report Type: 
  Country: None (occurrence: None)
  Receive Date: 20100503
  Receipt Date: 20100503
  Transmission Date: 20101027
  Serious: Yes (Other)
  Sender: FDA-Public Use
  Company Number: None

PATIENT
  Age: 2 Year
  Sex: Male
  Weight: 15.8759 kg

DRUGS (1)
  1. CHILDREN'S ZYRTEC ALLERGY [Suspect]
     Indication: MULTIPLE ALLERGIES
     Dosage: 0.5 TEASPOON 1 / DAY AS NEEDED PO
     Route: 048
     Dates: start: 20100115, end: 20100411

REACTIONS (7)
  - DIARRHOEA [None]
  - DIET REFUSAL [None]
  - GASTROOESOPHAGEAL REFLUX DISEASE [None]
  - HAEMATOCHEZIA [None]
  - INFANTILE SPITTING UP [None]
  - MUCOUS STOOLS [None]
  - WEIGHT DECREASED [None]
